FAERS Safety Report 12546694 (Version 1)
Quarter: 2016Q3

REPORT INFORMATION
  Report Type: Spontaneous
  Country: NZ (occurrence: NZ)
  Receive Date: 20160711
  Receipt Date: 20160711
  Transmission Date: 20161109
  Serious: Yes (Disabling)
  Sender: FDA-Public Use
  Company Number: NZ-GLAXOSMITHKLINE-NZ2016GSK082459

PATIENT
  Sex: Female
  Weight: 63 kg

DRUGS (1)
  1. ANORO ELLIPTA [Suspect]
     Active Substance: UMECLIDINIUM BROMIDE\VILANTEROL TRIFENATATE
     Indication: PRODUCT USED FOR UNKNOWN INDICATION
     Dosage: 1 DF, QD

REACTIONS (6)
  - Peak expiratory flow rate decreased [Unknown]
  - Dyspnoea [Unknown]
  - Malaise [Recovered/Resolved]
  - Drug ineffective [Unknown]
  - Ataxia [Recovering/Resolving]
  - Muscular weakness [Unknown]
